FAERS Safety Report 20573883 (Version 2)
Quarter: 2022Q2

REPORT INFORMATION
  Report Type: Spontaneous
  Country: US (occurrence: US)
  Receive Date: 20220309
  Receipt Date: 20220413
  Transmission Date: 20220721
  Serious: Yes (Other)
  Sender: FDA-Public Use
  Company Number: US-Teikoku Pharma USA-TPU2022-00150

PATIENT
  Sex: Male
  Weight: 113.05 kg

DRUGS (4)
  1. LIDODERM [Suspect]
     Active Substance: LIDOCAINE
     Indication: Back pain
     Route: 061
     Dates: start: 2010, end: 2021
  2. LIDODERM [Suspect]
     Active Substance: LIDOCAINE
     Indication: Pain in extremity
     Dates: start: 2021
  3. LIDOCAINE PATCH [Suspect]
     Active Substance: LIDOCAINE
     Indication: Back pain
  4. LIDOCAINE PATCH [Suspect]
     Active Substance: LIDOCAINE
     Indication: Pain in extremity

REACTIONS (2)
  - Neck pain [Unknown]
  - Surgical failure [Not Recovered/Not Resolved]
